FAERS Safety Report 20885813 (Version 1)
Quarter: 2022Q2

REPORT INFORMATION
  Report Type: Spontaneous
  Country: CH (occurrence: CH)
  Receive Date: 20220527
  Receipt Date: 20220527
  Transmission Date: 20220721
  Serious: Yes (Other)
  Sender: FDA-Public Use
  Company Number: None

PATIENT
  Age: 47 Year
  Sex: Female

DRUGS (17)
  1. FILGRASTIM [Interacting]
     Active Substance: FILGRASTIM
     Dosage: (3010*6.[IU])AS NECESSARY
     Route: 058
     Dates: start: 20220225
  2. FILGRASTIM [Interacting]
     Active Substance: FILGRASTIM
     Dosage: (3010*6.[IU])AS NECESSARY
     Route: 058
     Dates: start: 20220311
  3. FILGRASTIM [Interacting]
     Active Substance: FILGRASTIM
     Dosage: (3010*6.[IU])AS NECESSARY
     Route: 058
     Dates: start: 20220413
  4. ISONIAZID [Interacting]
     Active Substance: ISONIAZID
     Dosage: 300 MG , FREQUENCY TIME: 1 DAY
     Route: 048
     Dates: start: 20211201
  5. ETANERCEPT [Interacting]
     Active Substance: ETANERCEPT
     Dosage: 50 MG , FREQUENCY TIME : 1 WEEK
     Route: 058
     Dates: start: 20211215
  6. DAFALGAN [Interacting]
     Active Substance: ACETAMINOPHEN
     Dosage: IF NECESSARY , UNIT DOSE : 1000 MG , FREQUENCY TIME : 3 DAYS
     Route: 048
  7. PREDNISONE [Concomitant]
     Active Substance: PREDNISONE
     Dosage: 10 MG , FREQUENCY TIME : 2 DAYS , DURATION : 1 YEAR
     Dates: start: 2021, end: 20220318
  8. PREDNISONE [Concomitant]
     Active Substance: PREDNISONE
     Dosage: 5 MG , FREQUENCY TIME : 2 DAYS
     Dates: start: 20220318
  9. CYMBALTA [Concomitant]
     Active Substance: DULOXETINE HYDROCHLORIDE
  10. TRESIBA [Concomitant]
     Active Substance: INSULIN DEGLUDEC
  11. PYRIDOXINE [Concomitant]
     Active Substance: PYRIDOXINE
  12. DOMPERIDONE [Concomitant]
     Active Substance: DOMPERIDONE
  13. FLURAZEPAM HYDROCHLORIDE [Concomitant]
     Active Substance: FLURAZEPAM HYDROCHLORIDE
  14. CHOLECALCIFEROL [Concomitant]
     Active Substance: CHOLECALCIFEROL
  15. RIFAMPIN [Concomitant]
     Active Substance: RIFAMPIN
     Dates: start: 20210720, end: 20211011
  16. METHOTREXATE [Concomitant]
     Active Substance: METHOTREXATE
     Dates: start: 20210127, end: 20211011
  17. TOCILIZUMAB [Concomitant]
     Active Substance: TOCILIZUMAB
     Dates: start: 202108, end: 20211011

REACTIONS (2)
  - Liver function test abnormal [Not Recovered/Not Resolved]
  - Drug interaction [Not Recovered/Not Resolved]

NARRATIVE: CASE EVENT DATE: 20220208
